FAERS Safety Report 7040383-X (Version None)
Quarter: 2010Q4

REPORT INFORMATION
  Report Type: 
  Country: None (occurrence: None)
  Receive Date: 20101008
  Receipt Date: 20101008
  Transmission Date: 20110411
  Serious: Yes (Death, Hospitalization)
  Sender: FDA-Public Use
  Company Number: None

PATIENT
  Age: 77 Year
  Sex: Female
  Weight: 81.6475 kg

DRUGS (1)
  1. PLAVIX [Suspect]
     Indication: CORONARY ARTERIAL STENT INSERTION
     Dosage: 75MG DAILY ORAL
     Route: 048
     Dates: start: 20100430, end: 20100509

REACTIONS (7)
  - ASTHENIA [None]
  - CONFUSIONAL STATE [None]
  - GASTROINTESTINAL HAEMORRHAGE [None]
  - HAEMATOCRIT DECREASED [None]
  - HAEMOGLOBIN DECREASED [None]
  - SEPSIS [None]
  - THROMBOTIC THROMBOCYTOPENIC PURPURA [None]
